FAERS Safety Report 8818015 (Version 2)
Quarter: 2012Q4

REPORT INFORMATION
  Report Type: 
  Country: US (occurrence: US)
  Receive Date: 20121001
  Receipt Date: 20121011
  Transmission Date: 20130627
  Serious: No
  Sender: FDA-Public Use
  Company Number: US-ASTRAZENECA-2012SE70614

PATIENT
  Sex: Female

DRUGS (1)
  1. NEXIUM [Suspect]
     Indication: DYSPEPSIA
     Route: 048

REACTIONS (3)
  - Dyspepsia [Unknown]
  - Drug dose omission [Unknown]
  - Off label use [Unknown]
